FAERS Safety Report 10315045 (Version 1)
Quarter: 2014Q3

REPORT INFORMATION
  Report Type: Report from Study
  Country: AR (occurrence: AR)
  Receive Date: 20140718
  Receipt Date: 20140718
  Transmission Date: 20150326
  Serious: Yes (Death)
  Sender: FDA-Public Use
  Company Number: PHHY2014AR088116

PATIENT
  Sex: Male

DRUGS (1)
  1. DIOVAN [Suspect]
     Active Substance: VALSARTAN
     Indication: HYPERTENSION
     Dosage: 1 DF (160 MG), DAILY
     Route: 048

REACTIONS (4)
  - Immunodeficiency [Fatal]
  - Pneumonia [Fatal]
  - Asthenia [Fatal]
  - Lymphocytic leukaemia [Fatal]
